FAERS Safety Report 14816457 (Version 1)
Quarter: 2018Q2

REPORT INFORMATION
  Report Type: Spontaneous
  Country: US (occurrence: US)
  Receive Date: 20180426
  Receipt Date: 20180426
  Transmission Date: 20180711
  Serious: No
  Sender: FDA-Public Use
  Company Number: US-TEVA-2018-US-872462

PATIENT
  Age: 24 Year
  Sex: Female

DRUGS (1)
  1. ESCITALOPRAM [Suspect]
     Active Substance: ESCITALOPRAM OXALATE
     Indication: DEPRESSION
     Dates: start: 2017

REACTIONS (17)
  - Decreased appetite [Unknown]
  - Feeling abnormal [Unknown]
  - Depressed mood [Unknown]
  - Hypersomnia [Unknown]
  - Eye pain [Unknown]
  - Anger [Unknown]
  - Impatience [Unknown]
  - Autophobia [Unknown]
  - Social avoidant behaviour [Unknown]
  - Thinking abnormal [Unknown]
  - Ocular discomfort [Unknown]
  - Formication [Unknown]
  - Irritability [Unknown]
  - Paraesthesia [Unknown]
  - Mental disorder [Unknown]
  - Screaming [Unknown]
  - Drug tolerance [Unknown]
